FAERS Safety Report 16100840 (Version 1)
Quarter: 2019Q1

REPORT INFORMATION
  Report Type: Spontaneous
  Country: US (occurrence: US)
  Receive Date: 20190219
  Receipt Date: 20190219
  Transmission Date: 20190418
  Serious: Yes (Disabling)
  Sender: FDA-Public Use
  Company Number: None

PATIENT
  Age: 80 Year
  Sex: Male
  Weight: 68.95 kg

DRUGS (11)
  1. SINGULAIR [Concomitant]
     Active Substance: MONTELUKAST SODIUM
  2. MIRALAX [Concomitant]
     Active Substance: POLYETHYLENE GLYCOL 3350
  3. MELATONIN [Concomitant]
     Active Substance: MELATONIN
  4. PRALUENT [Suspect]
     Active Substance: ALIROCUMAB
     Indication: BLOOD CHOLESTEROL INCREASED
     Dosage: ?          QUANTITY:75 MG MILLIGRAM(S);OTHER FREQUENCY:TWICE A MONTH;?
     Route: 048
     Dates: start: 20181020, end: 20181126
  5. CARVEDILOL. [Concomitant]
     Active Substance: CARVEDILOL
  6. FLOMAX [Concomitant]
     Active Substance: TAMSULOSIN HYDROCHLORIDE
  7. ASPIRIN. [Concomitant]
     Active Substance: ASPIRIN
  8. CLEARTIN [Concomitant]
  9. VITAMIN D [Concomitant]
     Active Substance: CHOLECALCIFEROL
  10. OMEPRAZOLE. [Concomitant]
     Active Substance: OMEPRAZOLE
  11. SERTRALINE [Concomitant]
     Active Substance: SERTRALINE HYDROCHLORIDE

REACTIONS (15)
  - Pain in extremity [None]
  - Nasopharyngitis [None]
  - Cough [None]
  - Restless legs syndrome [None]
  - Oropharyngeal pain [None]
  - Arthralgia [None]
  - Pain [None]
  - Groin pain [None]
  - Myalgia [None]
  - Rhinorrhoea [None]
  - Headache [None]
  - Chest pain [None]
  - Muscle spasms [None]
  - Ear pain [None]
  - Neck pain [None]

NARRATIVE: CASE EVENT DATE: 20181031
